FAERS Safety Report 5151361-X (Version None)
Quarter: 2006Q4

REPORT INFORMATION
  Report Type: 
  Country: None (occurrence: None)
  Receive Date: 20061114
  Receipt Date: 20061114
  Transmission Date: 20070319
  Serious: No
  Sender: FDA-Public Use
  Company Number: None

PATIENT
  Age: 28 Year
  Sex: Female
  Weight: 68.0396 kg

DRUGS (1)
  1. EQUATE PAIN RELIEVER 500 MG PERRIGO [Suspect]
     Indication: HEADACHE
     Dosage: 2 CAPLETS EVERY 6 HOURS PO
     Route: 048
     Dates: start: 20061025, end: 20061109

REACTIONS (2)
  - PHARYNGOLARYNGEAL PAIN [None]
  - STOMACH DISCOMFORT [None]
